FAERS Safety Report 10169330 (Version 1)
Quarter: 2014Q2

REPORT INFORMATION
  Report Type: Spontaneous
  Country: US (occurrence: US)
  Receive Date: 20140513
  Receipt Date: 20140513
  Transmission Date: 20141212
  Serious: No
  Sender: FDA-Public Use
  Company Number: US-PFIZER INC-2014128391

PATIENT
  Sex: Male

DRUGS (3)
  1. LIPITOR [Suspect]
     Dosage: 40 MG, 1X/DAY
     Dates: end: 2013
  2. ADVAIR DISKUS [Concomitant]
     Dosage: UNK
  3. TRIBENZOR [Concomitant]
     Dosage: 5/12.5/20 MG

REACTIONS (1)
  - Blood cholesterol increased [Unknown]
